FAERS Safety Report 17021679 (Version 10)
Quarter: 2021Q2

REPORT INFORMATION
  Report Type: Report from Study
  Country: HU (occurrence: HU)
  Receive Date: 20191112
  Receipt Date: 20210614
  Transmission Date: 20210716
  Serious: Yes (Death, Life-Threatening, Hospitalization)
  Sender: FDA-Public Use
  Company Number: NVSC2019HU026937

PATIENT
  Age: 64 Year
  Sex: Female
  Weight: 70 kg

DRUGS (16)
  1. CONTROLOC [Concomitant]
     Active Substance: PANTOPRAZOLE SODIUM
     Indication: DUODENITIS
     Dosage: UNK
     Route: 065
     Dates: start: 20191024
  2. LACTATED RINGERS SOLUTION [Concomitant]
     Active Substance: CALCIUM CHLORIDE\POTASSIUM CHLORIDE\SODIUM CHLORIDE\SODIUM LACTATE
     Indication: SUPPORTIVE CARE
     Dosage: UNK
     Route: 065
     Dates: start: 20191024, end: 20191024
  3. LAG525 [Suspect]
     Active Substance: IERAMILIMAB
     Indication: TRIPLE NEGATIVE BREAST CANCER
     Dosage: 400 MG, Q3W
     Route: 042
     Dates: start: 20190624, end: 20191007
  4. ONDANSETRON [Concomitant]
     Active Substance: ONDANSETRON
     Indication: PRODUCT USED FOR UNKNOWN INDICATION
     Dosage: UNK
     Route: 065
     Dates: start: 20191007
  5. MANNITOL. [Concomitant]
     Active Substance: MANNITOL
     Indication: OEDEMA
     Dosage: UNK
     Route: 065
     Dates: start: 20191024, end: 20191024
  6. METOCLOPRAMIDE. [Concomitant]
     Active Substance: METOCLOPRAMIDE
     Dosage: UNK
     Route: 065
     Dates: start: 20191024
  7. PANTOPRAZOLE [Concomitant]
     Active Substance: PANTOPRAZOLE
     Indication: NAUSEA
     Dosage: UNK
     Route: 065
     Dates: start: 20191024
  8. LACTATED RINGERS SOLUTION [Concomitant]
     Active Substance: CALCIUM CHLORIDE\POTASSIUM CHLORIDE\SODIUM CHLORIDE\SODIUM LACTATE
     Dosage: UNK
     Route: 065
     Dates: start: 20191031, end: 20191031
  9. MANNITOL. [Concomitant]
     Active Substance: MANNITOL
     Indication: NAUSEA
     Dosage: UNK
     Route: 065
     Dates: start: 20191101, end: 20191102
  10. CERUCAL [Concomitant]
     Active Substance: METOCLOPRAMIDE HYDROCHLORIDE
     Indication: DUODENITIS
     Dosage: UNK
     Route: 065
     Dates: start: 20191024
  11. ORADEXON [Concomitant]
     Active Substance: DEXAMETHASONE
     Indication: DIZZINESS
     Dosage: UNK
     Route: 065
     Dates: start: 20191101, end: 20191101
  12. GLUCOSE [Concomitant]
     Active Substance: DEXTROSE
     Indication: SUPPORTIVE CARE
     Dosage: 5 %
     Route: 065
     Dates: start: 20191024, end: 20191024
  13. METOCLOPRAMIDE. [Concomitant]
     Active Substance: METOCLOPRAMIDE
     Indication: NAUSEA
     Dosage: UNK
     Route: 065
     Dates: start: 20191024, end: 20191024
  14. MANNISOL [Concomitant]
     Indication: DIZZINESS
     Dosage: UNK
     Route: 065
     Dates: start: 20191101, end: 20191102
  15. CARBOPLATIN. [Suspect]
     Active Substance: CARBOPLATIN
     Indication: TRIPLE NEGATIVE BREAST CANCER
     Dosage: 699 MG, Q3W
     Route: 042
     Dates: start: 20190624, end: 20191007
  16. PANTOPRAZOLE [Concomitant]
     Active Substance: PANTOPRAZOLE
     Dosage: UNK
     Route: 065
     Dates: start: 20191024, end: 20191218

REACTIONS (1)
  - Metastases to meninges [Fatal]

NARRATIVE: CASE EVENT DATE: 20191101
